FAERS Safety Report 12675090 (Version 2)
Quarter: 2017Q3

REPORT INFORMATION
  Report Type: Report from Study
  Country: US (occurrence: US)
  Receive Date: 20160823
  Receipt Date: 20170825
  Transmission Date: 20171127
  Serious: No
  Sender: FDA-Public Use
  Company Number: PHHY2015US158264

PATIENT
  Age: 56 Year
  Sex: Male

DRUGS (1)
  1. GILENYA [Suspect]
     Active Substance: FINGOLIMOD HYDROCHLORIDE
     Indication: MULTIPLE SCLEROSIS
     Dosage: UNK, QD
     Route: 048

REACTIONS (7)
  - Fatigue [Unknown]
  - Fall [Unknown]
  - Micturition urgency [Unknown]
  - Balance disorder [Unknown]
  - Concomitant disease aggravated [Unknown]
  - Herpes zoster [Unknown]
  - Asthenia [Unknown]

NARRATIVE: CASE EVENT DATE: 20150319
